FAERS Safety Report 8742230 (Version 2)
Quarter: 2012Q4

REPORT INFORMATION
  Report Type: 
  Country: AU (occurrence: AU)
  Receive Date: 20120824
  Receipt Date: 20120917
  Transmission Date: 20130627
  Serious: Yes (Hospitalization, Other)
  Sender: FDA-Public Use
  Company Number: PHHY2012AU072585

PATIENT
  Age: 29 None
  Sex: Male

DRUGS (2)
  1. CLOZARIL [Suspect]
     Indication: SCHIZOPHRENIA
     Dosage: 600 mg
     Route: 048
     Dates: start: 20110802, end: 20120813
  2. AMISULPRIDE [Concomitant]
     Dosage: 300 mg, BID
     Route: 048
     Dates: start: 20120912

REACTIONS (6)
  - Gastrointestinal haemorrhage [Unknown]
  - Abdominal pain [Unknown]
  - Iron deficiency anaemia [Unknown]
  - Orthostatic hypotension [Unknown]
  - Malaise [Unknown]
  - Antipsychotic drug level below therapeutic [Unknown]
